FAERS Safety Report 16404491 (Version 2)
Quarter: 2019Q2

REPORT INFORMATION
  Report Type: Spontaneous
  Country: GB (occurrence: GB)
  Receive Date: 20190607
  Receipt Date: 20190610
  Transmission Date: 20190711
  Serious: Yes (Hospitalization, Other)
  Sender: FDA-Public Use
  Company Number: GB-NAPPMUNDI-USA-2019-0147393

PATIENT
  Age: 76 Year
  Sex: Female

DRUGS (14)
  1. MOMETASONE [Concomitant]
     Active Substance: MOMETASONE
     Route: 045
  2. NORTRIPTYLINE [Concomitant]
     Active Substance: NORTRIPTYLINE
  3. CYCLIZINE [Concomitant]
     Active Substance: CYCLIZINE
  4. OXYCODONE HCL CR TABLETS (SIMILAR TO NDA 22-272) [Suspect]
     Active Substance: OXYCODONE HYDROCHLORIDE
     Indication: ANALGESIC THERAPY
     Dosage: EXTENDED RELEASE (ER) ALONGSIDE AN AVERAGE TOTAL DAILY DOSE OF OXYCODONE I/R 60 MG
     Route: 048
  5. DELTA D3 [Concomitant]
  6. AROMASTIN [Concomitant]
     Indication: BREAST CANCER METASTATIC
  7. OXYCODONE HCL CR TABLETS (SIMILAR TO NDA 22-272) [Suspect]
     Active Substance: OXYCODONE HYDROCHLORIDE
     Indication: BREAKTHROUGH PAIN
  8. SPIROMAX [Concomitant]
     Dosage: INHALER
     Route: 055
  9. LANSOPRAZOLE. [Concomitant]
     Active Substance: LANSOPRAZOLE
  10. NIFEDIPINE. [Concomitant]
     Active Substance: NIFEDIPINE
  11. SERTRALINE [Concomitant]
     Active Substance: SERTRALINE HYDROCHLORIDE
  12. PARACETAMOL [Concomitant]
     Active Substance: ACETAMINOPHEN
  13. OXYCODONE HYDROCHLORIDE (SIMILAR TO NDA 22-272) [Suspect]
     Active Substance: OXYCODONE HYDROCHLORIDE
     Indication: ANALGESIC THERAPY
     Dosage: OVER 24 HOURS WAS COMMENCED USING A SYRINGE DRIVER
     Route: 058
  14. LEVOTHYROXINE. [Concomitant]
     Active Substance: LEVOTHYROXINE

REACTIONS (4)
  - Hyperaesthesia [Recovering/Resolving]
  - Hypersensitivity [Recovering/Resolving]
  - Delirium [Recovering/Resolving]
  - Condition aggravated [Recovering/Resolving]
